FAERS Safety Report 4339362-2 (Version None)
Quarter: 2004Q2

REPORT INFORMATION
  Report Type: 
  Country: None (occurrence: None)
  Receive Date: 20040412
  Receipt Date: 20040331
  Transmission Date: 20050107
  Serious: Yes (Hospitalization)
  Sender: FDA-Public Use
  Company Number: 04P-008-0252889-00

PATIENT
  Age: 38 Year
  Sex: Male

DRUGS (11)
  1. NORVIR [Suspect]
     Indication: HIV INFECTION
     Dosage: 100 MG, 4 IN 1 D, ORAL
     Route: 048
     Dates: start: 20030226, end: 20031209
  2. T20 [Concomitant]
  3. VIREAD [Concomitant]
  4. FLUCONAZOLE [Concomitant]
  5. CLARITHROMYCIN [Concomitant]
  6. RIFABUTIN [Concomitant]
  7. ETHAMBUTOL DIHYDROCHLORIDE [Concomitant]
  8. ZOVIRAX [Concomitant]
  9. BACTRIM [Concomitant]
  10. LOPERAMIDE HCL [Concomitant]
  11. TIPRANAVIR [Concomitant]

REACTIONS (12)
  - BIOPSY LIVER ABNORMAL [None]
  - BLOOD ELECTROLYTES ABNORMAL [None]
  - COGNITIVE DISORDER [None]
  - CYTOMEGALOVIRUS CHORIORETINITIS [None]
  - DEHYDRATION [None]
  - DRUG INEFFECTIVE [None]
  - FLUID OVERLOAD [None]
  - HEPATIC STEATOSIS [None]
  - HYPOTENSION [None]
  - IMMUNE RECONSTITUTION SYNDROME [None]
  - PHYSICAL EXAMINATION ABNORMAL [None]
  - RENAL FAILURE ACUTE [None]
